FAERS Safety Report 12506954 (Version 3)
Quarter: 2016Q3

REPORT INFORMATION
  Report Type: Spontaneous
  Country: US (occurrence: US)
  Receive Date: 20160629
  Receipt Date: 20160712
  Transmission Date: 20161109
  Serious: Yes (Death, Other)
  Sender: FDA-Public Use
  Company Number: US-BEH-2016070571

PATIENT
  Age: 64 Year
  Sex: Male

DRUGS (13)
  1. AMINOCAPROIC ACID. [Suspect]
     Active Substance: AMINOCAPROIC ACID
     Dosage: 1 G, QH
     Route: 042
  2. AMINOCAPROIC ACID. [Suspect]
     Active Substance: AMINOCAPROIC ACID
     Dosage: 5 G, UNK
     Route: 042
  3. RED BLOOD CELLS [Concomitant]
     Active Substance: HUMAN RED BLOOD CELL
     Dosage: 2 UNITS
     Route: 065
  4. PLATELETS [Concomitant]
     Active Substance: HUMAN PLATELET, ALLOGENIC
     Indication: HAEMORRHAGE
     Dosage: 13 UNITS
     Route: 065
  5. CRYOPRECIPITATE [Concomitant]
     Active Substance: CRYOPRECIPITATED ANTIHEMOPHILIC FACTOR (HUMAN)
     Indication: HAEMORRHAGE
     Dosage: 4 UNITS
     Route: 065
  6. FRESH FROZEN PLASMA [Concomitant]
     Active Substance: HUMAN PLASMA
     Dosage: 13 UNITS
     Route: 065
  7. KCENTRA [Suspect]
     Active Substance: COAGULATION FACTOR IX HUMAN\COAGULATION FACTOR VII HUMAN\COAGULATION FACTOR X HUMAN\PROTEIN C\PROTEIN S HUMAN\PROTHROMBIN
     Indication: PULMONARY HAEMORRHAGE
     Dosage: 35 IU/KG, UNK
     Route: 065
  8. HEPARIN [Suspect]
     Active Substance: HEPARIN SODIUM
     Indication: HAEMORRHAGE
     Dosage: 4 UNITS / KG / HOUR
     Route: 065
  9. FRESH FROZEN PLASMA [Concomitant]
     Active Substance: HUMAN PLASMA
     Indication: HAEMORRHAGE
     Dosage: 8 UNITS
     Route: 065
  10. AMINOCAPROIC ACID. [Suspect]
     Active Substance: AMINOCAPROIC ACID
     Indication: HAEMOSTASIS
     Dosage: 4 G, UNK
     Route: 042
  11. RED BLOOD CELLS [Concomitant]
     Active Substance: HUMAN RED BLOOD CELL
     Dosage: 28 UNITS
     Route: 065
  12. DESMOPRESSIN (INN) [Suspect]
     Active Substance: DESMOPRESSIN
     Indication: PULMONARY HAEMORRHAGE
     Dosage: 0.3 ?G/KG, UNK
     Route: 065
  13. AMINOCAPROIC ACID. [Suspect]
     Active Substance: AMINOCAPROIC ACID
     Indication: PULMONARY HAEMORRHAGE
     Dosage: 0.25 G, QH
     Route: 042

REACTIONS (1)
  - Drug ineffective [Fatal]
